FAERS Safety Report 9905377 (Version 4)
Quarter: 2014Q2

REPORT INFORMATION
  Report Type: Spontaneous
  Country: US (occurrence: US)
  Receive Date: 20140218
  Receipt Date: 20140507
  Transmission Date: 20141212
  Serious: Yes (Other)
  Sender: FDA-Public Use
  Company Number: US-PFIZER INC-2014042076

PATIENT
  Sex: Female

DRUGS (2)
  1. ZOLOFT [Suspect]
     Dosage: 50 MG, UNK
     Dates: start: 1994
  2. ZOLOFT [Suspect]
     Dosage: 25 MG, UNK

REACTIONS (29)
  - Cerebrovascular accident [Unknown]
  - Diabetes mellitus [Unknown]
  - Angina pectoris [Unknown]
  - Cerebral haemorrhage [Unknown]
  - Loss of consciousness [Unknown]
  - Adrenal neoplasm [Unknown]
  - Aphasia [Unknown]
  - Reaction to colouring [Unknown]
  - Headache [Unknown]
  - Fall [Unknown]
  - Lip dry [Unknown]
  - Lip disorder [Unknown]
  - Panic reaction [Unknown]
  - Cardiac disorder [Unknown]
  - Thyroid disorder [Unknown]
  - Blood alkaline phosphatase increased [Unknown]
  - Weight increased [Unknown]
  - Dizziness [Unknown]
  - Mood altered [Unknown]
  - Irritability [Unknown]
  - Hyperhidrosis [Unknown]
  - Condition aggravated [Unknown]
  - Malaise [Unknown]
  - Palpitations [Unknown]
  - Thinking abnormal [Unknown]
  - Somnolence [Unknown]
  - Activities of daily living impaired [Unknown]
  - Medication error [Unknown]
  - Incorrect dose administered [Unknown]
